FAERS Safety Report 6743473-1 (Version None)
Quarter: 2010Q2

REPORT INFORMATION
  Report Type: 
  Country: None (occurrence: None)
  Receive Date: 20100527
  Receipt Date: 20100514
  Transmission Date: 20101027
  Serious: Yes (Other)
  Sender: FDA-Public Use
  Company Number: DE-MYLANLABS-2010S1008695

PATIENT
  Age: 78 Year
  Sex: Female

DRUGS (9)
  1. CARBAMAZEPINE [Suspect]
     Indication: DIABETIC NEUROPATHY
     Route: 048
     Dates: start: 20091202
  2. BROMAZEPAM [Suspect]
     Indication: SLEEP DISORDER
     Route: 048
     Dates: start: 20091003, end: 20091202
  3. DOXEPIN HCL [Suspect]
     Indication: RESTLESSNESS
     Dosage: DAILY DOSE: 1 DF DOSAGE FORM EVERY DAYS
     Route: 048
     Dates: start: 20091003
  4. PANTOPRAZOLE [Concomitant]
     Indication: PROPHYLAXIS
     Dosage: DAILY DOSE: 1 DF DOSAGE FORM EVERY DAYS
     Route: 048
     Dates: start: 20091003
  5. ASPIRIN [Concomitant]
     Indication: CORONARY ARTERY DISEASE
     Dosage: DAILY DOSE: 1 DF DOSAGE FORM EVERY DAYS
     Route: 048
     Dates: start: 20091003
  6. FERRO SANOL /00023503/ [Concomitant]
     Indication: ANAEMIA
     Dosage: DAILY DOSE: 1 DF DOSAGE FORM EVERY DAYS
     Route: 048
     Dates: start: 20091003
  7. FURORESE [Concomitant]
     Indication: OEDEMA PERIPHERAL
     Route: 048
     Dates: start: 20091003
  8. BISOHEXAL /00802602/ [Concomitant]
     Indication: CARDIAC FAILURE
     Route: 048
     Dates: start: 20091003
  9. ALLOPURINOL [Concomitant]
     Indication: HYPERURICAEMIA
     Route: 048
     Dates: start: 20091003

REACTIONS (1)
  - FALL [None]
